FAERS Safety Report 4404109-8 (Version None)
Quarter: 2004Q3

REPORT INFORMATION
  Report Type: 
  Country: None (occurrence: None)
  Receive Date: 20040719
  Receipt Date: 20040623
  Transmission Date: 20050211
  Serious: Yes (Disabling)
  Sender: FDA-Public Use
  Company Number: 371251

PATIENT
  Age: 35 Year
  Sex: Male

DRUGS (1)
  1. NEOTIGASON (ACITRETIN) [Suspect]
     Indication: PSORIASIS
     Dosage: 25 MG DAILY ORAL
     Route: 048
     Dates: start: 20040407, end: 20040609

REACTIONS (1)
  - HEADACHE [None]
